FAERS Safety Report 9943925 (Version 1)
Quarter: 2014Q1

REPORT INFORMATION
  Report Type: Spontaneous
  Country: US (occurrence: US)
  Receive Date: 20140303
  Receipt Date: 20140303
  Transmission Date: 20141002
  Serious: No
  Sender: FDA-Public Use
  Company Number: US-GILEAD-2012-0059525

PATIENT
  Sex: Male

DRUGS (2)
  1. RANEXA [Suspect]
     Indication: PRODUCT USED FOR UNKNOWN INDICATION
     Dosage: 1000 MG, ONCE
     Route: 048
     Dates: start: 20120808
  2. RANEXA [Suspect]
     Dosage: 500 MG, UNK

REACTIONS (4)
  - Blood pressure decreased [Unknown]
  - Cyanosis [Unknown]
  - Presyncope [Unknown]
  - Accidental overdose [Recovered/Resolved]
